FAERS Safety Report 12155733 (Version 4)
Quarter: 2017Q4

REPORT INFORMATION
  Report Type: Spontaneous
  Country: US (occurrence: US)
  Receive Date: 20160307
  Receipt Date: 20171101
  Transmission Date: 20180320
  Serious: No
  Sender: FDA-Public Use
  Company Number: US-LUNDBECK-DKLU2010341

PATIENT
  Age: 32 Year
  Sex: Female

DRUGS (9)
  1. NORTHERA [Suspect]
     Active Substance: DROXIDOPA
     Indication: PRODUCT USED FOR UNKNOWN INDICATION
     Dosage: TITRATION COMPLETE
     Route: 065
  2. MIDODRINE [Suspect]
     Active Substance: MIDODRINE
     Route: 065
  3. MIDODRINE [Suspect]
     Active Substance: MIDODRINE
     Route: 065
     Dates: start: 201606
  4. NORTHERA [Suspect]
     Active Substance: DROXIDOPA
     Route: 065
     Dates: start: 201606
  5. NORTHERA [Suspect]
     Active Substance: DROXIDOPA
     Route: 065
     Dates: start: 201606
  6. MIDODRINE [Suspect]
     Active Substance: MIDODRINE
     Route: 065
     Dates: start: 201606
  7. NORTHERA [Suspect]
     Active Substance: DROXIDOPA
     Dosage: TITRATION COMPLETE
     Route: 065
     Dates: start: 201601
  8. MIDODRINE [Suspect]
     Active Substance: MIDODRINE
     Indication: PRODUCT USED FOR UNKNOWN INDICATION
     Route: 065
  9. NORTHERA [Suspect]
     Active Substance: DROXIDOPA
     Dosage: SCHEDULE 3
     Route: 065

REACTIONS (9)
  - Constipation [Not Recovered/Not Resolved]
  - Balance disorder [Unknown]
  - Dizziness [Not Recovered/Not Resolved]
  - Nodal arrhythmia [Unknown]
  - Headache [Not Recovered/Not Resolved]
  - Syncope [Recovering/Resolving]
  - Fall [Unknown]
  - Presyncope [Recovering/Resolving]
  - Thermal burn [Not Recovered/Not Resolved]

NARRATIVE: CASE EVENT DATE: 2016
